FAERS Safety Report 23134493 (Version 1)
Quarter: 2023Q4

REPORT INFORMATION
  Report Type: Report from Study
  Country: BR (occurrence: BR)
  Receive Date: 20231101
  Receipt Date: 20231101
  Transmission Date: 20240110
  Serious: Yes (Hospitalization, Other)
  Sender: FDA-Public Use
  Company Number: BR-TAKEDA-BR202029981

PATIENT
  Sex: Male
  Weight: 24 kg

DRUGS (2)
  1. IDURSULFASE [Suspect]
     Active Substance: IDURSULFASE
     Indication: Mucopolysaccharidosis II
     Dosage: 2 DOSAGE FORM
     Route: 065
  2. IDURSULFASE [Suspect]
     Active Substance: IDURSULFASE
     Dosage: 3 DOSAGE FORM, 1/WEEK
     Route: 042

REACTIONS (9)
  - Urinary tract infection [Unknown]
  - Abdominal hernia [Unknown]
  - Umbilical hernia [Unknown]
  - Anaemia [Unknown]
  - Decreased appetite [Unknown]
  - Anuria [Unknown]
  - Insomnia [Not Recovered/Not Resolved]
  - Inguinal hernia [Not Recovered/Not Resolved]
  - Toe walking [Not Recovered/Not Resolved]
